FAERS Safety Report 15658293 (Version 1)
Quarter: 2018Q4

REPORT INFORMATION
  Report Type: Other
  Country: BR (occurrence: BR)
  Receive Date: 20181126
  Receipt Date: 20181126
  Transmission Date: 20190205
  Serious: Yes (Life-Threatening)
  Sender: FDA-Public Use
  Company Number: BR-B. BRAUN MEDICAL INC.-2059273

PATIENT
  Age: 37 Year
  Sex: Female

DRUGS (4)
  1. METRONIDAZOLE INJECTION USP (5 MG/ML) IN PAB? PLASTIC CONTAINER (NDA 0 [Suspect]
     Active Substance: METRONIDAZOLE
  2. VANCOMYCIN HYDROCHLORIDE. [Concomitant]
     Active Substance: VANCOMYCIN HYDROCHLORIDE
  3. CEFTRIAXONE. [Concomitant]
     Active Substance: CEFTRIAXONE
  4. AMPICILLIN SODIUM. [Concomitant]
     Active Substance: AMPICILLIN SODIUM

REACTIONS (5)
  - Septic shock [None]
  - Pseudomembranous colitis [None]
  - Megacolon [None]
  - Foetal distress syndrome [None]
  - Clostridium difficile infection [None]
